FAERS Safety Report 18013063 (Version 8)
Quarter: 2021Q2

REPORT INFORMATION
  Report Type: Spontaneous
  Country: US (occurrence: US)
  Receive Date: 20200713
  Receipt Date: 20210504
  Transmission Date: 20210717
  Serious: Yes (Hospitalization, Other)
  Sender: FDA-Public Use
  Company Number: US-PFIZER INC-2020263350

PATIENT
  Age: 64 Year
  Sex: Male
  Weight: 65.77 kg

DRUGS (4)
  1. PREGABALIN. [Suspect]
     Active Substance: PREGABALIN
     Indication: FIBROMYALGIA
     Dosage: 300 MG, 2X/DAY
     Route: 048
     Dates: start: 2020, end: 2020
  2. PREGABALIN. [Suspect]
     Active Substance: PREGABALIN
     Indication: NEUROPATHY PERIPHERAL
     Dosage: UNK, 2X/DAY (TWICE FOR SEVERAL DAYS AT A TIME)
  3. PREGABALIN. [Suspect]
     Active Substance: PREGABALIN
     Indication: TREMOR
     Dosage: UNK
  4. PREGABALIN. [Suspect]
     Active Substance: PREGABALIN
     Indication: BACK DISORDER

REACTIONS (10)
  - Drug ineffective [Unknown]
  - Abdominal discomfort [Recovered/Resolved]
  - Bladder disorder [Recovered/Resolved]
  - Feeling abnormal [Unknown]
  - Illness [Unknown]
  - Asthenia [Recovered/Resolved]
  - Agitation [Recovered/Resolved]
  - Tachyphrenia [Recovered/Resolved]
  - Pain [Recovered/Resolved]
  - Drug withdrawal syndrome [Unknown]
